FAERS Safety Report 7435925-6 (Version None)
Quarter: 2011Q2

REPORT INFORMATION
  Report Type: 
  Country: None (occurrence: None)
  Receive Date: 20110418
  Receipt Date: 20110322
  Transmission Date: 20111010
  Serious: Yes (Hospitalization, Disabling)
  Sender: FDA-Public Use
  Company Number: 1000020103

PATIENT
  Age: 75 Year
  Sex: Female

DRUGS (5)
  1. PARACETAMOL (PARACETAMOL) (PARACETAMOL) [Concomitant]
  2. OMEPRAZOLE [Suspect]
     Indication: GASTRIC DISORDER
     Dosage: 20 MG (20 MG, 1 IN 1 D), ORAL
     Route: 048
     Dates: start: 20091201, end: 20101126
  3. CORTANCYL (PREDNISONE) (TABLETS) (PREDNISONE) [Concomitant]
  4. ESCITALOPRAM [Suspect]
     Indication: DEPRESSION
     Dosage: 10 MG (10 MG, 1 IN 1 D), ORAL
     Route: 048
     Dates: end: 20101126
  5. CONTRAMAL (TRAMADOL HYDROCHLORIDE) (CAPSULES) (TRAMADOL HYDROCHLORIDE) [Concomitant]

REACTIONS (5)
  - DRUG INTERACTION [None]
  - INAPPROPRIATE ANTIDIURETIC HORMONE SECRETION [None]
  - FALL [None]
  - CERVICAL VERTEBRAL FRACTURE [None]
  - HYPONATRAEMIA [None]
